FAERS Safety Report 14404802 (Version 1)
Quarter: 2018Q1

REPORT INFORMATION
  Report Type: Spontaneous
  Country: AR (occurrence: AR)
  Receive Date: 20180118
  Receipt Date: 20180118
  Transmission Date: 20180509
  Serious: Yes (Other)
  Sender: FDA-Public Use
  Company Number: AR-ROCHE-2053612

PATIENT
  Sex: Male

DRUGS (1)
  1. AVASTIN [Suspect]
     Active Substance: BEVACIZUMAB
     Indication: MACULAR DEGENERATION
     Route: 065
     Dates: start: 2013

REACTIONS (3)
  - Intentional product use issue [Unknown]
  - Off label use [Unknown]
  - Blindness [Unknown]

NARRATIVE: CASE EVENT DATE: 2013
